FAERS Safety Report 4824140-8 (Version None)
Quarter: 2005Q4

REPORT INFORMATION
  Report Type: 
  Country: None (occurrence: None)
  Receive Date: 20051108
  Receipt Date: 20051028
  Transmission Date: 20060501
  Serious: Yes (Death, Other)
  Sender: FDA-Public Use
  Company Number: USA0510112238

PATIENT
  Age: 84 Year
  Sex: Female

DRUGS (1)
  1. FORTEO [Suspect]

REACTIONS (3)
  - LUNG CARCINOMA CELL TYPE UNSPECIFIED RECURRENT [None]
  - MALIGNANT PLEURAL EFFUSION [None]
  - RESPIRATORY FAILURE [None]
